FAERS Safety Report 25476402 (Version 2)
Quarter: 2025Q3

REPORT INFORMATION
  Report Type: Spontaneous
  Country: US (occurrence: US)
  Receive Date: 20250625
  Receipt Date: 20250716
  Transmission Date: 20251021
  Serious: No
  Sender: SCA PHARMACEUTICALS, LITTLE ROCK, AR
  Company Number: US-SCA PHARMACEUTICALS-2025SCA00022

PATIENT
  Sex: Male
  Weight: 84 kg

DRUGS (7)
  1. ROCURONIUM BROMIDE [Suspect]
     Active Substance: ROCURONIUM BROMIDE
     Indication: Hypotonia
     Dosage: 50 MG, 1X/DAY
     Route: 042
  2. OMEPRAZOLE [Concomitant]
     Active Substance: OMEPRAZOLE
  3. APREPITANT [Concomitant]
     Active Substance: APREPITANT
  4. ALBUTEROL [Concomitant]
     Active Substance: ALBUTEROL
  5. FENTANYL [Concomitant]
     Active Substance: FENTANYL
  6. PROPOFOL [Concomitant]
     Active Substance: PROPOFOL
  7. MIDAZOLAM [Concomitant]
     Active Substance: MIDAZOLAM

REACTIONS (1)
  - Erythema [Recovering/Resolving]
